FAERS Safety Report 8133701-2 (Version None)
Quarter: 2012Q1

REPORT INFORMATION
  Report Type: 
  Country: None (occurrence: None)
  Receive Date: 20120213
  Receipt Date: 20120127
  Transmission Date: 20120608
  Serious: Yes (Death, Other)
  Sender: FDA-Public Use
  Company Number: ES-PFIZER INC-2011305581

PATIENT

DRUGS (1)
  1. IBUPROFEN [Suspect]
     Dosage: UNK
     Route: 048

REACTIONS (1)
  - ACUTE HEPATIC FAILURE [None]
